FAERS Safety Report 8353126-4 (Version None)
Quarter: 2012Q2

REPORT INFORMATION
  Report Type: 
  Country: None (occurrence: None)
  Receive Date: 20120511
  Receipt Date: 20120502
  Transmission Date: 20120825
  Serious: Yes (Other)
  Sender: FDA-Public Use
  Company Number: US-ABBOTT-12P-163-0931602-00

PATIENT
  Sex: Female

DRUGS (7)
  1. HUMIRA [Suspect]
     Indication: PSORIATIC ARTHROPATHY
     Route: 058
     Dates: start: 20120429
  2. KLONOPIN [Concomitant]
     Indication: ANXIETY
  3. KLONOPIN [Concomitant]
     Indication: SLEEP DISORDER
  4. CYMBALTA [Concomitant]
     Indication: DEPRESSION
  5. MS CONTIN [Concomitant]
     Indication: PRODUCT USED FOR UNKNOWN INDICATION
  6. LASIX [Concomitant]
     Indication: PRODUCT USED FOR UNKNOWN INDICATION
  7. DIOVAN [Concomitant]
     Indication: BLOOD PRESSURE

REACTIONS (10)
  - GAIT DISTURBANCE [None]
  - SKIN BURNING SENSATION [None]
  - PUSTULAR PSORIASIS [None]
  - RASH GENERALISED [None]
  - ERYTHEMA [None]
  - PRURITUS GENERALISED [None]
  - OEDEMA PERIPHERAL [None]
  - CELLULITIS [None]
  - STAPHYLOCOCCAL INFECTION [None]
  - PAIN [None]
